FAERS Safety Report 15166508 (Version 2)
Quarter: 2019Q3

REPORT INFORMATION
  Report Type: Spontaneous
  Country: US (occurrence: US)
  Receive Date: 20180719
  Receipt Date: 20190723
  Transmission Date: 20191004
  Serious: No
  Sender: FDA-Public Use
  Company Number: US-OTSUKA-2018_012413

PATIENT
  Age: 39 Year
  Sex: Female

DRUGS (3)
  1. REXULTI [Suspect]
     Active Substance: BREXPIPRAZOLE
     Dosage: 1 MG, UNK
     Route: 065
     Dates: start: 201604
  2. REXULTI [Suspect]
     Active Substance: BREXPIPRAZOLE
     Indication: AFFECTIVE DISORDER
     Dosage: 3 MG, UNK
     Route: 065
     Dates: start: 201804
  3. REXULTI [Suspect]
     Active Substance: BREXPIPRAZOLE
     Dosage: 2 MG, UNK
     Route: 065
     Dates: start: 201606

REACTIONS (2)
  - Menstruation irregular [Recovered/Resolved]
  - Product use in unapproved indication [Unknown]

NARRATIVE: CASE EVENT DATE: 201804
